FAERS Safety Report 24275149 (Version 1)
Quarter: 2024Q3

REPORT INFORMATION
  Report Type: Spontaneous
  Country: US (occurrence: US)
  Receive Date: 20240902
  Receipt Date: 20240902
  Transmission Date: 20241017
  Serious: Yes (Hospitalization, Other)
  Sender: NOVITIUM PHARMA
  Company Number: US-NOVITIUMPHARMA-2024USNVP01743

PATIENT
  Age: 59 Year
  Sex: Female

DRUGS (4)
  1. ACETAZOLAMIDE [Suspect]
     Active Substance: ACETAZOLAMIDE
     Indication: Prophylaxis
     Dosage: ONE DOSE
  2. KETOROLAC [Concomitant]
     Active Substance: KETOROLAC TROMETHAMINE
     Indication: Postoperative care
  3. OFLOXACIN [Concomitant]
     Active Substance: OFLOXACIN
     Indication: Postoperative care
  4. PREDNISOLONE [Concomitant]
     Active Substance: PREDNISOLONE
     Indication: Postoperative care

REACTIONS (3)
  - Non-cardiogenic pulmonary oedema [Recovering/Resolving]
  - Hyperhidrosis [Unknown]
  - Gastrointestinal disorder [Unknown]
